FAERS Safety Report 10530948 (Version 2)
Quarter: 2014Q4

REPORT INFORMATION
  Report Type: Spontaneous
  Country: US (occurrence: US)
  Receive Date: 20141021
  Receipt Date: 20141209
  Transmission Date: 20150528
  Serious: Yes (Other)
  Sender: FDA-Public Use
  Company Number: US-SA-2014SA141318

PATIENT
  Sex: Female

DRUGS (4)
  1. LOVENOX [Suspect]
     Active Substance: ENOXAPARIN SODIUM
     Route: 065
     Dates: start: 20140822
  2. LOVENOX [Suspect]
     Active Substance: ENOXAPARIN SODIUM
     Route: 065
     Dates: start: 20140830
  3. LOVENOX [Suspect]
     Active Substance: ENOXAPARIN SODIUM
     Route: 065
     Dates: start: 20140822
  4. LOVENOX [Suspect]
     Active Substance: ENOXAPARIN SODIUM
     Route: 065
     Dates: start: 20140830

REACTIONS (9)
  - Bacterial infection [Unknown]
  - Chills [Unknown]
  - Fatigue [Unknown]
  - Influenza like illness [Unknown]
  - Respiratory tract congestion [Unknown]
  - Nausea [Recovered/Resolved]
  - Ear pain [Unknown]
  - Pain [Unknown]
  - Hot flush [Unknown]
